FAERS Safety Report 22197811 (Version 1)
Quarter: 2023Q2

REPORT INFORMATION
  Report Type: Spontaneous
  Country: US (occurrence: None)
  Receive Date: 20230411
  Receipt Date: 20230411
  Transmission Date: 20230721
  Serious: Yes (Hospitalization)
  Sender: FDA-Public Use
  Company Number: None

PATIENT
  Sex: Female

DRUGS (16)
  1. ENVARSUS XR [Suspect]
     Active Substance: TACROLIMUS
     Indication: Liver transplant
     Dosage: FREQUENCY : 3 TIMES A DAY;?
     Route: 048
     Dates: start: 20180803
  2. ALENDRONATE [Concomitant]
     Active Substance: ALENDRONATE SODIUM
  3. CELLCEPT [Concomitant]
     Active Substance: MYCOPHENOLATE MOFETIL
  4. CENTRUM TAB SILVER [Concomitant]
  5. GENTEAL ORO OPTH [Concomitant]
  6. LASIX TAB 20MG [Concomitant]
  7. LOSARTAN POT TAB 50MG [Concomitant]
  8. METOPROLOL TAB 25MG ER [Concomitant]
  9. MULTI-B-PLUS TAB [Concomitant]
  10. MYCOPHENOLIC ACID [Concomitant]
     Active Substance: MYCOPHENOLIC ACID
  11. OMEPRAZOLE [Concomitant]
     Active Substance: OMEPRAZOLE
  12. OXYBUTYNIN TAB 5MG ER [Concomitant]
  13. PROGRAF [Concomitant]
     Active Substance: TACROLIMUS
  14. RIFAMPIN CAP 150MG [Concomitant]
  15. TRIAMT/HCTZ TAB 75-50MG [Concomitant]
  16. URSODIOL CAP 300MG [Concomitant]

REACTIONS (1)
  - Fall [None]
